FAERS Safety Report 15760489 (Version 1)
Quarter: 2018Q4

REPORT INFORMATION
  Report Type: Spontaneous
  Country: CN (occurrence: CN)
  Receive Date: 20181226
  Receipt Date: 20181226
  Transmission Date: 20190205
  Serious: Yes (Other)
  Sender: FDA-Public Use
  Company Number: CN-ROCHE-2235831

PATIENT
  Age: 53 Year
  Sex: Male
  Weight: 74 kg

DRUGS (7)
  1. AVASTIN [Suspect]
     Active Substance: BEVACIZUMAB
     Route: 065
     Dates: end: 20160711
  2. XELODA [Suspect]
     Active Substance: CAPECITABINE
     Route: 048
     Dates: end: 20160711
  3. OXALIPLATIN. [Concomitant]
     Active Substance: OXALIPLATIN
     Indication: RECTAL ADENOCARCINOMA
     Route: 065
     Dates: start: 20160217
  4. XELODA [Suspect]
     Active Substance: CAPECITABINE
     Dosage: 3 TABLETS
     Route: 048
     Dates: start: 20170505, end: 20170825
  5. XELODA [Suspect]
     Active Substance: CAPECITABINE
     Indication: RECTAL ADENOCARCINOMA
     Route: 048
     Dates: start: 20160217
  6. OXALIPLATIN. [Concomitant]
     Active Substance: OXALIPLATIN
     Route: 065
     Dates: start: 20160711
  7. AVASTIN [Suspect]
     Active Substance: BEVACIZUMAB
     Indication: RECTAL ADENOCARCINOMA
     Route: 065
     Dates: start: 20160217

REACTIONS (1)
  - Pleural effusion [Unknown]
